FAERS Safety Report 6550931-1 (Version None)
Quarter: 2010Q1

REPORT INFORMATION
  Report Type: 
  Country: None (occurrence: None)
  Receive Date: 20100125
  Receipt Date: 20100121
  Transmission Date: 20100710
  Serious: Yes (Other)
  Sender: FDA-Public Use
  Company Number: BE-PFIZER INC-2010008192

PATIENT
  Age: 74 Year
  Sex: Female

DRUGS (9)
  1. CHAMPIX [Suspect]
     Indication: SMOKING CESSATION THERAPY
     Dosage: UNK
     Route: 048
     Dates: start: 20091111, end: 20091209
  2. MEDROL [Concomitant]
     Indication: VASCULITIS
     Dosage: 16 MG, ALTERNATE DAY
     Route: 048
     Dates: start: 20091013, end: 20091210
  3. CRESTOR [Concomitant]
     Indication: HYPERCHOLESTEROLAEMIA
     Dosage: 10 MG, 1X/DAY
     Route: 048
  4. LEXOTAN [Concomitant]
     Dosage: 3 MG, 1X/DAY
     Route: 048
  5. PANTOPRAZOLE [Concomitant]
     Dosage: 40 MG, 1X/DAY
     Route: 048
  6. D-VITAL CALCIUM [Concomitant]
     Dosage: UNK
     Route: 048
     Dates: start: 20091013
  7. FIBION [Concomitant]
     Dosage: UNK
     Route: 048
  8. APROVEL [Concomitant]
     Dosage: 150 MG, 1X/DAY
     Route: 048
  9. ANTIBIOTICS [Concomitant]
     Dosage: UNK
     Dates: start: 20090917, end: 20091008

REACTIONS (1)
  - RASH GENERALISED [None]
